FAERS Safety Report 4333748-8 (Version None)
Quarter: 2004Q2

REPORT INFORMATION
  Report Type: 
  Country: None (occurrence: None)
  Receive Date: 20040406
  Receipt Date: 20040406
  Transmission Date: 20050107
  Serious: No
  Sender: FDA-Public Use
  Company Number: None

PATIENT
  Age: 32 Year
  Sex: Male
  Weight: 67.1324 kg

DRUGS (1)
  1. STRATTERA [Suspect]
     Indication: ATTENTION DEFICIT/HYPERACTIVITY DISORDER
     Dosage: 1 DAY BUCCAL
     Route: 002
     Dates: start: 20040328, end: 20040405

REACTIONS (3)
  - EJACULATION DISORDER [None]
  - TESTICULAR DISORDER [None]
  - TESTICULAR PAIN [None]
